FAERS Safety Report 9114836 (Version 2)
Quarter: 2014Q1

REPORT INFORMATION
  Report Type: Spontaneous
  Country: US (occurrence: US)
  Receive Date: 20130208
  Receipt Date: 20140312
  Transmission Date: 20141002
  Serious: Yes (Hospitalization, Other)
  Sender: FDA-Public Use
  Company Number: US-009507513-1302USA002889

PATIENT
  Sex: Female
  Weight: 104.31 kg

DRUGS (2)
  1. NUVARING [Suspect]
     Indication: CONTRACEPTION
     Dosage: UNK
     Route: 067
     Dates: start: 201004, end: 20100725
  2. NUVARING [Suspect]
     Dosage: UNK
     Route: 067
     Dates: start: 200805, end: 2009

REACTIONS (7)
  - Dehydration [Recovered/Resolved]
  - Pulmonary embolism [Unknown]
  - Gastroenteritis viral [Unknown]
  - Maternal exposure before pregnancy [Recovered/Resolved]
  - Complication of pregnancy [Recovered/Resolved]
  - Hyperlipidaemia [Unknown]
  - Physical abuse [Unknown]
